FAERS Safety Report 15283089 (Version 1)
Quarter: 2018Q3

REPORT INFORMATION
  Report Type: Spontaneous
  Country: US (occurrence: US)
  Receive Date: 20180816
  Receipt Date: 20180816
  Transmission Date: 20181010
  Serious: Yes (Hospitalization, Other)
  Sender: FDA-Public Use
  Company Number: US-BEH-2018093782

PATIENT
  Age: 76 Year
  Sex: Female
  Weight: 73.92 kg

DRUGS (22)
  1. HIZENTRA [Suspect]
     Active Substance: HUMAN IMMUNOGLOBULIN G
     Dosage: 8 G, QOW
     Route: 058
     Dates: start: 20170824
  2. PREDNISONE. [Concomitant]
     Active Substance: PREDNISONE
  3. CLARINEX                           /01202601/ [Concomitant]
     Active Substance: LORATADINE\PSEUDOEPHEDRINE SULFATE
  4. GABAPENTIN. [Concomitant]
     Active Substance: GABAPENTIN
  5. ACETAMINOPHEN. [Concomitant]
     Active Substance: ACETAMINOPHEN
  6. XOPENEX [Concomitant]
     Active Substance: LEVALBUTEROL HYDROCHLORIDE
  7. DEXILANT [Concomitant]
     Active Substance: DEXLANSOPRAZOLE
  8. DIPHENHYDRAMINE. [Concomitant]
     Active Substance: DIPHENHYDRAMINE
  9. EPINEPHRINE. [Concomitant]
     Active Substance: EPINEPHRINE
  10. MIRALAX [Concomitant]
     Active Substance: POLYETHYLENE GLYCOL 3350
  11. FLOVENT [Concomitant]
     Active Substance: FLUTICASONE PROPIONATE
  12. CEFTIN [Concomitant]
     Active Substance: CEFUROXIME AXETIL
  13. BUDESONIDE. [Concomitant]
     Active Substance: BUDESONIDE
  14. SYNTHROID [Concomitant]
     Active Substance: LEVOTHYROXINE SODIUM
  15. TOBRAMYCIN. [Concomitant]
     Active Substance: TOBRAMYCIN
  16. HIZENTRA [Suspect]
     Active Substance: HUMAN IMMUNOGLOBULIN G
     Indication: PULMONARY ARTERIAL HYPERTENSION
     Dosage: UNK
     Route: 058
  17. ELIQUIS [Concomitant]
     Active Substance: APIXABAN
  18. CARDIZEM [Concomitant]
     Active Substance: DILTIAZEM HYDROCHLORIDE
  19. MULTIVITAMIN                       /00097801/ [Concomitant]
     Active Substance: VITAMINS
  20. PRESERVISION AREDS [Concomitant]
     Active Substance: MINERALS\VITAMINS
  21. SODIUM CHLORIDE. [Concomitant]
     Active Substance: SODIUM CHLORIDE
  22. AZITHROMYCIN ANHYDROUS. [Concomitant]
     Active Substance: AZITHROMYCIN ANHYDROUS

REACTIONS (1)
  - Cardiac ablation [Unknown]

NARRATIVE: CASE EVENT DATE: 201807
